FAERS Safety Report 8922894 (Version 1)
Quarter: 2012Q4

REPORT INFORMATION
  Report Type: Report from Study
  Country: CA (occurrence: CA)
  Receive Date: 20121123
  Receipt Date: 20121123
  Transmission Date: 20130627
  Serious: No
  Sender: FDA-Public Use
  Company Number: CA-JNJFOC-20121110333

PATIENT
  Age: 53 Year
  Sex: Female
  Weight: 76 kg

DRUGS (4)
  1. REMICADE [Suspect]
     Indication: PSORIATIC ARTHROPATHY
     Route: 042
     Dates: start: 20070910
  2. CELEBREX [Concomitant]
     Route: 065
  3. FOLIC ACID [Concomitant]
     Route: 065
  4. AERIUS [Concomitant]
     Route: 065

REACTIONS (1)
  - Herpes zoster [Not Recovered/Not Resolved]
